FAERS Safety Report 15426264 (Version 1)
Quarter: 2018Q3

REPORT INFORMATION
  Report Type: Spontaneous
  Country: US (occurrence: US)
  Receive Date: 20180925
  Receipt Date: 20180925
  Transmission Date: 20181010
  Serious: No
  Sender: FDA-Public Use
  Company Number: US-INDIVIOR LIMITED-INDV-104082-2017

PATIENT
  Sex: Male

DRUGS (2)
  1. SUBOXONE [Suspect]
     Active Substance: BUPRENORPHINE HYDROCHLORIDE\NALOXONE HYDROCHLORIDE
     Dosage: 8MG, UNK
     Route: 065
     Dates: start: 2017, end: 20170811
  2. SUBOXONE [Suspect]
     Active Substance: BUPRENORPHINE HYDROCHLORIDE\NALOXONE HYDROCHLORIDE
     Indication: PRODUCT USED FOR UNKNOWN INDICATION
     Dosage: 12MG, UNK
     Route: 065
     Dates: start: 201706, end: 2017

REACTIONS (8)
  - Polyuria [Unknown]
  - Anxiety [Unknown]
  - Feeling abnormal [Unknown]
  - Intentional underdose [Recovered/Resolved]
  - Insomnia [Unknown]
  - Decreased appetite [Unknown]
  - Product preparation error [Recovered/Resolved]
  - Diarrhoea [Unknown]

NARRATIVE: CASE EVENT DATE: 2017
